FAERS Safety Report 9695701 (Version 1)
Quarter: 2013Q4

REPORT INFORMATION
  Report Type: Spontaneous
  Country: US (occurrence: US)
  Receive Date: 20131119
  Receipt Date: 20131119
  Transmission Date: 20140711
  Serious: No
  Sender: FDA-Public Use
  Company Number: US-009507513-1311USA007941

PATIENT
  Age: 11 Year
  Sex: Male

DRUGS (2)
  1. CLARITIN REDITABS [Suspect]
     Indication: PRODUCT USED FOR UNKNOWN INDICATION
     Dosage: 10 MG, QD
     Route: 048
  2. CLARITIN REDITABS [Suspect]
     Dosage: 10 MG, ONCE
     Route: 048
     Dates: start: 20131107

REACTIONS (1)
  - Sleep disorder [Unknown]
